FAERS Safety Report 4950099-9 (Version None)
Quarter: 2006Q1

REPORT INFORMATION
  Report Type: 
  Country: None (occurrence: None)
  Receive Date: 20060320
  Receipt Date: 20060320
  Transmission Date: 20060701
  Serious: Yes (Other)
  Sender: FDA-Public Use
  Company Number: None

PATIENT
  Age: 59 Year
  Sex: Female
  Weight: 99.7913 kg

DRUGS (1)
  1. ZOCOR [Suspect]
     Indication: BLOOD CHOLESTEROL INCREASED
     Dosage: 1  DAILY  PO
     Route: 048
     Dates: start: 20010101, end: 20060318

REACTIONS (14)
  - ALOPECIA [None]
  - AMNESIA [None]
  - DIARRHOEA [None]
  - DIZZINESS [None]
  - DYSPHASIA [None]
  - EYELID PTOSIS [None]
  - FALL [None]
  - FEELING ABNORMAL [None]
  - FLATULENCE [None]
  - GAIT DISTURBANCE [None]
  - HYPOAESTHESIA [None]
  - MENTAL IMPAIRMENT [None]
  - PARAESTHESIA [None]
  - TINNITUS [None]
